FAERS Safety Report 17781444 (Version 1)
Quarter: 2020Q2

REPORT INFORMATION
  Report Type: Spontaneous
  Country: US (occurrence: US)
  Receive Date: 20200513
  Receipt Date: 20200513
  Transmission Date: 20200714
  Serious: Yes (Other)
  Sender: FDA-Public Use
  Company Number: None

PATIENT
  Age: 86 Year
  Sex: Female
  Weight: 63.5 kg

DRUGS (11)
  1. CHLORHEXIDINE GLUCONATE GLUCONATE ORAL RINSE, USP [Suspect]
     Active Substance: CHLORHEXIDINE GLUCONATE
     Indication: GINGIVAL BLEEDING
     Dosage: ?          QUANTITY:1 DF DOSAGE FORM;?
     Route: 048
  2. LOTREL [Concomitant]
     Active Substance: AMLODIPINE BESYLATE\BENAZEPRIL HYDROCHLORIDE
  3. PHENOFIBRATE [Concomitant]
     Active Substance: FENOFIBRATE
  4. REFRESH OPTIVE (DRY EYE) [Concomitant]
  5. FISH OIL [Concomitant]
     Active Substance: FISH OIL
  6. LORATADINE. [Concomitant]
     Active Substance: LORATADINE
  7. VIT. B12 [Concomitant]
  8. TEMAZAPAN [Concomitant]
  9. TOPROL XL [Concomitant]
     Active Substance: METOPROLOL SUCCINATE
  10. TYLENOL [Concomitant]
     Active Substance: ACETAMINOPHEN
  11. VITAMIN D3 [Concomitant]
     Active Substance: CHOLECALCIFEROL

REACTIONS (3)
  - Tongue discomfort [None]
  - Taste disorder [None]
  - Swollen tongue [None]

NARRATIVE: CASE EVENT DATE: 20200107
